FAERS Safety Report 5872908-1 (Version None)
Quarter: 2008Q3

REPORT INFORMATION
  Report Type: 
  Country: None (occurrence: None)
  Receive Date: 20080903
  Receipt Date: 20080822
  Transmission Date: 20090109
  Serious: Yes (Other)
  Sender: FDA-Public Use
  Company Number: 024651

PATIENT
  Age: 27 Year
  Sex: Female

DRUGS (1)
  1. CLARAVIS [Suspect]
     Dosage: 40 MG QD ORAL
     Route: 048
     Dates: start: 20070731, end: 20080130

REACTIONS (6)
  - ABORTION INDUCED [None]
  - DRUG INEFFECTIVE [None]
  - SINUSITIS [None]
  - TONSILLITIS [None]
  - TREATMENT NONCOMPLIANCE [None]
  - UNINTENDED PREGNANCY [None]
